FAERS Safety Report 23433821 (Version 2)
Quarter: 2024Q1

REPORT INFORMATION
  Report Type: Spontaneous
  Country: US (occurrence: US)
  Receive Date: 20240123
  Receipt Date: 20240125
  Transmission Date: 20240409
  Serious: No
  Sender: FDA-Public Use
  Company Number: US-PFIZER INC-202400019131

PATIENT
  Age: 14 Year
  Sex: Male

DRUGS (1)
  1. LITFULO [Suspect]
     Active Substance: RITLECITINIB TOSYLATE
     Indication: Alopecia areata
     Dosage: UNK

REACTIONS (3)
  - Red blood cell count increased [Unknown]
  - Haemoglobin increased [Unknown]
  - Haematocrit increased [Unknown]
